FAERS Safety Report 20713082 (Version 1)
Quarter: 2022Q2

REPORT INFORMATION
  Report Type: Spontaneous
  Country: RU (occurrence: RU)
  Receive Date: 20220415
  Receipt Date: 20220415
  Transmission Date: 20220720
  Serious: Yes (Other)
  Sender: FDA-Public Use
  Company Number: RU-ASTELLAS-2022US013077

PATIENT
  Sex: Male

DRUGS (1)
  1. TAMSULOSIN HYDROCHLORIDE [Suspect]
     Active Substance: TAMSULOSIN HYDROCHLORIDE
     Indication: Product used for unknown indication
     Dosage: 0.4 MG, QD
     Route: 048

REACTIONS (1)
  - Anaphylactic reaction [Unknown]
